FAERS Safety Report 7293191-9 (Version None)
Quarter: 2011Q1

REPORT INFORMATION
  Report Type: 
  Country: None (occurrence: None)
  Receive Date: 20110210
  Receipt Date: 20110210
  Transmission Date: 20110831
  Serious: Yes (Other)
  Sender: FDA-Public Use
  Company Number: None

PATIENT
  Age: 79 Year
  Sex: Male
  Weight: 100.6985 kg

DRUGS (1)
  1. LIPITOR [Suspect]
     Indication: MYOCARDIAL INFARCTION
     Dates: start: 20101211, end: 20110120

REACTIONS (3)
  - ARTHRALGIA [None]
  - SWELLING [None]
  - MYALGIA [None]
